FAERS Safety Report 5404672-4 (Version None)
Quarter: 2007Q3

REPORT INFORMATION
  Report Type: 
  Country: None (occurrence: None)
  Receive Date: 20070731
  Receipt Date: 20070704
  Transmission Date: 20080115
  Serious: Yes (Other)
  Sender: FDA-Public Use
  Company Number: E3810-01061-SPO-ES

PATIENT
  Age: 36 Year
  Sex: Male
  Weight: 81 kg

DRUGS (9)
  1. RABEPRAZOLE SODIUM [Suspect]
     Indication: PEPTIC ULCER
     Dosage: 20 MG, 1 IN 1 D, ORAL
     Route: 048
     Dates: start: 20000101, end: 20070501
  2. FENTANYL [Suspect]
     Indication: SPONDYLOARTHROPATHY
     Dosage: 12 UG, 2 IN 1 WK
     Dates: start: 20050101
  3. DARCOTIN (PREDNISONE) [Concomitant]
  4. ATACAND [Concomitant]
  5. TRAVATAN [Concomitant]
  6. TIMOFTOL (TIMOLOL MALEATE) [Concomitant]
  7. CLAVERSAL (MESALAZINE) [Concomitant]
  8. ACTONEL [Concomitant]
  9. NATECAL (CALCIUM CARBONATE) [Concomitant]

REACTIONS (2)
  - DRUG INTERACTION [None]
  - GYNAECOMASTIA [None]
